FAERS Safety Report 4459232-9 (Version None)
Quarter: 2004Q3

REPORT INFORMATION
  Report Type: 
  Country: None (occurrence: None)
  Receive Date: 20040921
  Receipt Date: 20040921
  Transmission Date: 20050211
  Serious: No
  Sender: FDA-Public Use
  Company Number: None

PATIENT
  Age: 43 Year
  Sex: Male
  Weight: 65.7716 kg

DRUGS (2)
  1. HYDROXYAPATITE OCULAR IMPLANT [Suspect]
  2. DONOR SCLERA [Suspect]

REACTIONS (3)
  - FATIGUE [None]
  - POSTOPERATIVE INFECTION [None]
  - STAPHYLOCOCCAL INFECTION [None]
